FAERS Safety Report 25425374 (Version 1)
Quarter: 2025Q2

REPORT INFORMATION
  Report Type: Spontaneous
  Country: GB (occurrence: GB)
  Receive Date: 20250611
  Receipt Date: 20250611
  Transmission Date: 20250716
  Serious: Yes (Other)
  Sender: Harrow Health
  Company Number: GB-HARROW-HAR-2025-GB-00256

PATIENT
  Sex: Female

DRUGS (1)
  1. VERKAZIA [Suspect]
     Active Substance: CYCLOSPORINE
     Route: 047

REACTIONS (1)
  - Lower respiratory tract infection [Not Recovered/Not Resolved]
